FAERS Safety Report 23123590 (Version 2)
Quarter: 2023Q4

REPORT INFORMATION
  Report Type: Other
  Country: SE (occurrence: SE)
  Receive Date: 20231030
  Receipt Date: 20231110
  Transmission Date: 20240109
  Serious: Yes (Hospitalization)
  Sender: FDA-Public Use
  Company Number: SE-ROCHE-3447833

PATIENT
  Age: 54 Year
  Sex: Female

DRUGS (2)
  1. RITUXIMAB [Suspect]
     Active Substance: RITUXIMAB
     Indication: Rheumatoid arthritis
     Dosage: EVERY 6TH MONTH
     Route: 065
  2. LEFLUNOMIDE [Suspect]
     Active Substance: LEFLUNOMIDE
     Indication: Rheumatoid arthritis
     Route: 065

REACTIONS (5)
  - Haemophilus infection [Recovered/Resolved]
  - Atypical pneumonia [Recovered/Resolved]
  - COVID-19 [Recovered/Resolved]
  - Vaccination failure [Unknown]
  - Vaccine interaction [Unknown]

NARRATIVE: CASE EVENT DATE: 20220701
